FAERS Safety Report 8181930-4 (Version None)
Quarter: 2012Q1

REPORT INFORMATION
  Report Type: 
  Country: None (occurrence: None)
  Receive Date: 20120302
  Receipt Date: 20120224
  Transmission Date: 20120608
  Serious: Yes (Other)
  Sender: FDA-Public Use
  Company Number: JP-GILEAD-2012-0051086

PATIENT
  Sex: Female

DRUGS (21)
  1. URSODIOL [Concomitant]
     Dosage: 600MG PER DAY
     Route: 048
  2. ALLEGRA [Concomitant]
     Indication: RHINITIS ALLERGIC
     Dosage: 120MG PER DAY
     Route: 048
  3. ALLEGRA [Concomitant]
     Dosage: 120MG PER DAY
     Route: 048
  4. FUROSEMIDE [Concomitant]
     Dosage: 10MG PER DAY
     Route: 048
  5. REVATIO [Concomitant]
     Indication: PULMONARY ARTERIAL HYPERTENSION
     Dosage: 60MG PER DAY
     Route: 048
  6. RABEPRAZOLE SODIUM [Concomitant]
     Dosage: 10MG PER DAY
     Route: 048
  7. PURSENNIDE                         /00571902/ [Concomitant]
     Indication: CONSTIPATION
     Dosage: 36MG PER DAY
     Route: 048
  8. CINAL [Concomitant]
     Dosage: 3IUAX PER DAY
     Route: 048
  9. AMBRISENTAN [Suspect]
     Indication: PULMONARY ARTERIAL HYPERTENSION
     Dosage: 2.5MG PER DAY
     Route: 048
     Dates: start: 20110206, end: 20110207
  10. REVATIO [Concomitant]
     Dosage: 60MG PER DAY
     Route: 048
  11. INCREMIN                           /00875401/ [Concomitant]
     Indication: IRON DEFICIENCY ANAEMIA
     Dosage: 15ML PER DAY
     Route: 048
  12. PROMAC                             /00024401/ [Concomitant]
     Dosage: 150MG PER DAY
     Route: 048
  13. SPIRONOLACTONE [Concomitant]
     Indication: OEDEMA
     Dosage: 50MG PER DAY
     Route: 048
  14. URSODIOL [Concomitant]
     Dosage: 600MG PER DAY
     Route: 048
  15. SPIRONOLACTONE [Concomitant]
     Dosage: 50MG PER DAY
     Route: 048
  16. LIVACT                             /00847901/ [Concomitant]
     Dosage: 1IUAX PER DAY
     Route: 048
  17. WARFARIN SODIUM [Concomitant]
     Indication: PORTAL VEIN THROMBOSIS
     Dosage: 1MG PER DAY
     Route: 048
  18. WARFARIN SODIUM [Concomitant]
     Dosage: 1MG PER DAY
     Route: 048
  19. RABEPRAZOLE SODIUM [Concomitant]
     Indication: PROPHYLAXIS
     Dosage: 10MG PER DAY
     Route: 048
  20. FUROSEMIDE [Concomitant]
     Indication: OEDEMA
     Dosage: 10MG PER DAY
     Route: 048
  21. CINAL [Concomitant]
     Dosage: 3IUAX PER DAY
     Route: 048

REACTIONS (3)
  - HYPERAMMONAEMIA [None]
  - ALTERED STATE OF CONSCIOUSNESS [None]
  - HEPATIC ENCEPHALOPATHY [None]
